FAERS Safety Report 5889650-3 (Version None)
Quarter: 2008Q3

REPORT INFORMATION
  Report Type: 
  Country: None (occurrence: None)
  Receive Date: 20080919
  Receipt Date: 20080911
  Transmission Date: 20090109
  Serious: Yes (Other)
  Sender: FDA-Public Use
  Company Number: NL-AMGEN-US250342

PATIENT
  Age: 62 Year
  Sex: Female
  Weight: 55 kg

DRUGS (2)
  1. ENBREL [Suspect]
     Indication: RHEUMATOID ARTHRITIS
     Route: 058
     Dates: start: 20070807, end: 20071016
  2. HYZAAR [Concomitant]
     Indication: HYPERTENSION
     Dosage: 50/12.5MG 1 TIME PER DAY
     Route: 048

REACTIONS (5)
  - INJECTION SITE ERYTHEMA [None]
  - INJECTION SITE PRURITUS [None]
  - PRURITUS GENERALISED [None]
  - SKIN REACTION [None]
  - SWOLLEN TONGUE [None]
